FAERS Safety Report 5416839-X (Version None)
Quarter: 2007Q3

REPORT INFORMATION
  Report Type: 
  Country: None (occurrence: None)
  Receive Date: 20070718
  Receipt Date: 20060816
  Transmission Date: 20080115
  Serious: Yes (Hospitalization)
  Sender: FDA-Public Use
  Company Number: 2006057769

PATIENT
  Age: 82 Year
  Sex: Female
  Weight: 63.5036 kg

DRUGS (18)
  1. CELEBREX [Suspect]
     Indication: ARTHRITIS
     Dosage: 200 MG (200 MG, 1 IN 1 D)
     Dates: end: 20040101
  2. LORTAB [Concomitant]
  3. IMITREX [Concomitant]
  4. LEVOXYL [Concomitant]
  5. XANAX [Concomitant]
  6. NADOLOL [Concomitant]
  7. PROTONIX [Concomitant]
  8. PLAVIX [Concomitant]
  9. LIPITOR [Concomitant]
  10. HYDROCODONE BITARTRATE [Concomitant]
  11. URECHOLINE [Concomitant]
  12. ARTHROTEC [Concomitant]
  13. CALCIUM CITRATE (CALCIUM CITRATE) [Concomitant]
  14. ASPIRIN [Concomitant]
  15. PREMARIN [Concomitant]
  16. FLEXERIL [Concomitant]
  17. TAMSULOSIN HCL [Concomitant]
  18. URISED (ATROPINE SULFATE, BENZOIC ACID, GELSEMIUM HYOSCYAMINE, METHENA [Concomitant]

REACTIONS (1)
  - CEREBROVASCULAR ACCIDENT [None]
